FAERS Safety Report 7627530-3 (Version None)
Quarter: 2011Q3

REPORT INFORMATION
  Report Type: 
  Country: None (occurrence: None)
  Receive Date: 20110713
  Receipt Date: 20110628
  Transmission Date: 20111222
  Serious: Yes (Hospitalization)
  Sender: FDA-Public Use
  Company Number: 1000020671

PATIENT
  Sex: Female

DRUGS (4)
  1. ESCITALOPRAM [Suspect]
     Indication: DEPRESSION
  2. ANTACIDS (ANTACIDS) (ANTACIDS) [Concomitant]
  3. BERODUAL (FENOTEROL) (SPRAY (NOT INHALATION)) (FENOTEROL) [Concomitant]
  4. ATROVENT (IPRATROPIUM BROMIDE) (IPRATROPIUM BROMIDE) [Concomitant]

REACTIONS (6)
  - GASTRIC ULCER [None]
  - DUODENAL ULCER [None]
  - INSOMNIA [None]
  - PAIN [None]
  - FATIGUE [None]
  - BLOOD CHOLESTEROL INCREASED [None]
